FAERS Safety Report 14221485 (Version 2)
Quarter: 2017Q4

REPORT INFORMATION
  Report Type: Spontaneous
  Country: JP (occurrence: JP)
  Receive Date: 20171124
  Receipt Date: 20171218
  Transmission Date: 20180321
  Serious: Yes (Hospitalization)
  Sender: FDA-Public Use
  Company Number: JP-JNJFOC-20171121266

PATIENT
  Age: 20 Year
  Sex: Male
  Weight: 62 kg

DRUGS (48)
  1. REMICADE [Suspect]
     Active Substance: INFLIXIMAB
     Indication: CROHN^S DISEASE
     Route: 042
     Dates: start: 20151110
  2. REMICADE [Suspect]
     Active Substance: INFLIXIMAB
     Indication: CROHN^S DISEASE
     Route: 042
     Dates: start: 20160423
  3. REMICADE [Suspect]
     Active Substance: INFLIXIMAB
     Indication: CROHN^S DISEASE
     Route: 042
     Dates: start: 20170624
  4. PREDONINE [Concomitant]
     Active Substance: PREDNISOLONE
     Route: 041
     Dates: start: 20160806, end: 20160806
  5. PREDONINE [Concomitant]
     Active Substance: PREDNISOLONE
     Route: 041
     Dates: start: 20161117, end: 20161117
  6. PREDONINE [Concomitant]
     Active Substance: PREDNISOLONE
     Route: 041
     Dates: start: 20170311, end: 20170311
  7. NORMAL SALINE [Concomitant]
     Active Substance: SODIUM CHLORIDE
     Route: 041
     Dates: start: 20150725, end: 20150725
  8. NORMAL SALINE [Concomitant]
     Active Substance: SODIUM CHLORIDE
     Route: 041
     Dates: start: 20160924, end: 20160924
  9. REMICADE [Suspect]
     Active Substance: INFLIXIMAB
     Indication: CROHN^S DISEASE
     Route: 042
     Dates: start: 20161117
  10. PREDONINE [Concomitant]
     Active Substance: PREDNISOLONE
     Route: 041
     Dates: start: 20160618, end: 20160618
  11. NORMAL SALINE [Concomitant]
     Active Substance: SODIUM CHLORIDE
     Route: 041
     Dates: start: 20160618, end: 20160618
  12. REMICADE [Suspect]
     Active Substance: INFLIXIMAB
     Indication: CROHN^S DISEASE
     Route: 042
     Dates: start: 20150725
  13. REMICADE [Suspect]
     Active Substance: INFLIXIMAB
     Indication: CROHN^S DISEASE
     Route: 042
     Dates: start: 20160109
  14. REMICADE [Suspect]
     Active Substance: INFLIXIMAB
     Indication: CROHN^S DISEASE
     Route: 042
     Dates: start: 20170429
  15. PREDONINE [Concomitant]
     Active Substance: PREDNISOLONE
     Route: 041
     Dates: start: 20160109, end: 20160109
  16. PREDONINE [Concomitant]
     Active Substance: PREDNISOLONE
     Route: 041
     Dates: start: 20170114, end: 20170114
  17. NORMAL SALINE [Concomitant]
     Active Substance: SODIUM CHLORIDE
     Route: 041
     Dates: start: 20170624, end: 20170624
  18. MIYA-BM [Concomitant]
     Active Substance: CLOSTRIDIUM BUTYRICUM SPORES STRAIN M-55
     Indication: CROHN^S DISEASE
     Route: 048
     Dates: end: 20170624
  19. REMICADE [Suspect]
     Active Substance: INFLIXIMAB
     Indication: CROHN^S DISEASE
     Route: 042
     Dates: start: 20080415
  20. REMICADE [Suspect]
     Active Substance: INFLIXIMAB
     Indication: CROHN^S DISEASE
     Route: 042
     Dates: start: 20160924
  21. REMICADE [Suspect]
     Active Substance: INFLIXIMAB
     Indication: CROHN^S DISEASE
     Route: 042
     Dates: start: 20170114
  22. PREDONINE [Concomitant]
     Active Substance: PREDNISOLONE
     Route: 041
     Dates: start: 20160924, end: 20160924
  23. PREDONINE [Concomitant]
     Active Substance: PREDNISOLONE
     Route: 041
     Dates: start: 20170624, end: 20170624
  24. NORMAL SALINE [Concomitant]
     Active Substance: SODIUM CHLORIDE
     Route: 041
     Dates: start: 20160109, end: 20160109
  25. SOLITA-T3 [Concomitant]
     Active Substance: POTASSIUM CHLORIDE\SODIUM CHLORIDE\SODIUM LACTATE
     Route: 041
     Dates: start: 20160109, end: 20160109
  26. NIZATIDINE. [Concomitant]
     Active Substance: NIZATIDINE
     Indication: CROHN^S DISEASE
     Route: 048
     Dates: end: 20170624
  27. REMICADE [Suspect]
     Active Substance: INFLIXIMAB
     Indication: CROHN^S DISEASE
     Route: 042
     Dates: start: 20170311
  28. PENTASA [Suspect]
     Active Substance: MESALAMINE
     Indication: CROHN^S DISEASE
     Route: 048
     Dates: end: 20170624
  29. ALCOHOL. [Suspect]
     Active Substance: ALCOHOL
     Indication: PRODUCT USED FOR UNKNOWN INDICATION
     Route: 065
  30. PREDONINE [Concomitant]
     Active Substance: PREDNISOLONE
     Route: 041
     Dates: start: 20170429, end: 20170429
  31. NORMAL SALINE [Concomitant]
     Active Substance: SODIUM CHLORIDE
     Route: 041
     Dates: start: 20150912, end: 20150912
  32. NORMAL SALINE [Concomitant]
     Active Substance: SODIUM CHLORIDE
     Route: 041
     Dates: start: 20170429, end: 20170429
  33. NORMAL SALINE [Concomitant]
     Active Substance: SODIUM CHLORIDE
     Route: 041
     Dates: start: 20170114, end: 20170114
  34. REMICADE [Suspect]
     Active Substance: INFLIXIMAB
     Indication: CROHN^S DISEASE
     Route: 042
     Dates: start: 20160618
  35. REMICADE [Suspect]
     Active Substance: INFLIXIMAB
     Indication: CROHN^S DISEASE
     Route: 042
     Dates: start: 20160806
  36. PREDONINE [Concomitant]
     Active Substance: PREDNISOLONE
     Route: 041
  37. PREDONINE [Concomitant]
     Active Substance: PREDNISOLONE
     Route: 041
     Dates: start: 20151110, end: 20151110
  38. PREDONINE [Concomitant]
     Active Substance: PREDNISOLONE
     Route: 041
     Dates: start: 20160227, end: 20160227
  39. PREDONINE [Concomitant]
     Active Substance: PREDNISOLONE
     Route: 041
     Dates: start: 20160423, end: 20160423
  40. NORMAL SALINE [Concomitant]
     Active Substance: SODIUM CHLORIDE
     Route: 041
     Dates: start: 20160806, end: 20160806
  41. NORMAL SALINE [Concomitant]
     Active Substance: SODIUM CHLORIDE
     Route: 041
     Dates: start: 20170311, end: 20170311
  42. REMICADE [Suspect]
     Active Substance: INFLIXIMAB
     Indication: CROHN^S DISEASE
     Route: 042
     Dates: start: 20150912
  43. REMICADE [Suspect]
     Active Substance: INFLIXIMAB
     Indication: CROHN^S DISEASE
     Route: 042
     Dates: start: 20160227
  44. PREDONINE [Concomitant]
     Active Substance: PREDNISOLONE
     Route: 041
  45. NORMAL SALINE [Concomitant]
     Active Substance: SODIUM CHLORIDE
     Route: 041
     Dates: start: 20151110, end: 20151110
  46. NORMAL SALINE [Concomitant]
     Active Substance: SODIUM CHLORIDE
     Route: 041
     Dates: start: 20160227, end: 20160227
  47. NORMAL SALINE [Concomitant]
     Active Substance: SODIUM CHLORIDE
     Route: 041
     Dates: start: 20160423, end: 20160423
  48. NORMAL SALINE [Concomitant]
     Active Substance: SODIUM CHLORIDE
     Route: 041
     Dates: start: 20161117, end: 20161117

REACTIONS (6)
  - Infusion related reaction [Recovered/Resolved]
  - IgA nephropathy [Recovered/Resolved]
  - Haemoglobin decreased [Recovered/Resolved]
  - Flushing [Recovered/Resolved]
  - Treatment noncompliance [Unknown]
  - Melaena [Recovered/Resolved]

NARRATIVE: CASE EVENT DATE: 200806
